FAERS Safety Report 7773786-6 (Version None)
Quarter: 2011Q3

REPORT INFORMATION
  Report Type: 
  Country: None (occurrence: None)
  Receive Date: 20110923
  Receipt Date: 20110919
  Transmission Date: 20111222
  Serious: Yes (Congenital Anomaly, Other)
  Sender: FDA-Public Use
  Company Number: FR-BRISTOL-MYERS SQUIBB COMPANY-16080954

PATIENT
  Weight: 3 kg

DRUGS (7)
  1. ZYPREXA [Concomitant]
  2. LAMICTAL [Concomitant]
  3. ATARAX [Concomitant]
  4. MONAZOL [Concomitant]
  5. DEPAKOTE [Suspect]
     Dosage: TABS
     Route: 064
     Dates: start: 20100802, end: 20100901
  6. ABILIFY [Suspect]
     Route: 064
     Dates: start: 20100802, end: 20100901
  7. OXAZEPAM [Concomitant]
     Dosage: 3/6 PER DAY.

REACTIONS (3)
  - MATERNAL DRUGS AFFECTING FOETUS [None]
  - BENIGN EAR NEOPLASM [None]
  - CONGENITAL TONGUE ANOMALY [None]
